FAERS Safety Report 25619773 (Version 2)
Quarter: 2025Q3

REPORT INFORMATION
  Report Type: Report from Study
  Country: CH (occurrence: CH)
  Receive Date: 20250729
  Receipt Date: 20250811
  Transmission Date: 20251020
  Serious: Yes (Death)
  Sender: ABBVIE
  Company Number: CH-ABBVIE-6392268

PATIENT
  Age: 77 Year
  Sex: Male
  Weight: 53 kg

DRUGS (2)
  1. CARBIDOPA\LEVODOPA [Suspect]
     Active Substance: CARBIDOPA\LEVODOPA
     Indication: Parkinson^s disease
     Route: 050
     Dates: start: 20240104
  2. CARBIDOPA\LEVODOPA [Suspect]
     Active Substance: CARBIDOPA\LEVODOPA

REACTIONS (7)
  - Death [Fatal]
  - Dysphagia [Not Recovered/Not Resolved]
  - Aspiration [Not Recovered/Not Resolved]
  - Food refusal [Not Recovered/Not Resolved]
  - Asthenia [Not Recovered/Not Resolved]
  - Cachexia [Not Recovered/Not Resolved]
  - Fluid intake reduced [Not Recovered/Not Resolved]

NARRATIVE: CASE EVENT DATE: 20250719
